FAERS Safety Report 5910064-1 (Version None)
Quarter: 2008Q4

REPORT INFORMATION
  Report Type: 
  Country: None (occurrence: None)
  Receive Date: 20081007
  Receipt Date: 20070824
  Transmission Date: 20090506
  Serious: Yes (Other)
  Sender: FDA-Public Use
  Company Number: US-ASTRAZENECA-2007UW20342

PATIENT
  Age: 72 Year
  Sex: Female
  Weight: 53.5 kg

DRUGS (3)
  1. ARIMIDEX [Suspect]
     Indication: BREAST CANCER FEMALE
     Route: 048
  2. EFFEXOR XR [Concomitant]
  3. BONIVA [Concomitant]

REACTIONS (1)
  - METASTASES TO LUNG [None]
